FAERS Safety Report 12477853 (Version 1)
Quarter: 2016Q2

REPORT INFORMATION
  Report Type: Spontaneous
  Country: US (occurrence: US)
  Receive Date: 20160617
  Receipt Date: 20160617
  Transmission Date: 20160815
  Serious: Yes (Other)
  Sender: FDA-Public Use
  Company Number: US-MYLANLABS-2016M1025201

PATIENT

DRUGS (1)
  1. PACLITAXEL. [Suspect]
     Active Substance: PACLITAXEL
     Indication: BREAST CANCER METASTATIC
     Dosage: 100 MG/M2; DAY 1, DAY 8, AND DAY 15 OF A 28 DAY CYCLE
     Route: 065
     Dates: start: 201410

REACTIONS (1)
  - Cystoid macular oedema [Recovered/Resolved]
